FAERS Safety Report 12808290 (Version 2)
Quarter: 2016Q4

REPORT INFORMATION
  Report Type: Report from Study
  Country: None (occurrence: TR)
  Receive Date: 20161004
  Receipt Date: 20161103
  Transmission Date: 20170207
  Serious: Yes (Hospitalization)
  Sender: FDA-Public Use
  Company Number: TR-ABBVIE-16P-161-1741441-00

PATIENT
  Age: 62 Year
  Sex: Female
  Weight: 80 kg

DRUGS (5)
  1. PK-MERZ [Concomitant]
     Active Substance: AMANTADINE
     Indication: PARKINSON^S DISEASE
     Dosage: 3X2
     Route: 048
  2. GLUFOR [Concomitant]
     Indication: DIABETES MELLITUS
     Route: 048
  3. LEVODOPA [Concomitant]
     Active Substance: LEVODOPA
     Indication: PARKINSON^S DISEASE
     Route: 048
  4. DUODOPA [Suspect]
     Active Substance: CARBIDOPA\LEVODOPA
     Indication: PARKINSON^S DISEASE
     Dosage: MORNING DOSE : 7.2 ML CONTINUOUS DOSE : 2.5 ML EXTRA DOSE : 1.5 ML
     Route: 050
     Dates: start: 20150527, end: 20160914
  5. AYRA [Concomitant]
     Indication: HYPERTENSION
     Route: 048

REACTIONS (1)
  - Bradykinesia [Recovered/Resolved]

NARRATIVE: CASE EVENT DATE: 20160914
